FAERS Safety Report 5671606-7 (Version None)
Quarter: 2008Q1

REPORT INFORMATION
  Report Type: 
  Country: None (occurrence: None)
  Receive Date: 20080313
  Receipt Date: 20080204
  Transmission Date: 20080703
  Serious: Yes (Death, Life-Threatening, Other)
  Sender: FDA-Public Use
  Company Number: 2008AL001388

PATIENT
  Sex: Male

DRUGS (1)
  1. CITALOPRAM HYDROBROMIDE [Suspect]
     Indication: DEPRESSION
     Dosage: 10 MG; ; PO
     Route: 048
     Dates: start: 20080103, end: 20080111

REACTIONS (2)
  - ASPHYXIA [None]
  - COMPLETED SUICIDE [None]
